FAERS Safety Report 7544188-2 (Version None)
Quarter: 2011Q2

REPORT INFORMATION
  Report Type: 
  Country: None (occurrence: None)
  Receive Date: 20110613
  Receipt Date: 20061201
  Transmission Date: 20111010
  Serious: Yes (Death)
  Sender: FDA-Public Use
  Company Number: PHNR2006AU01603

PATIENT
  Sex: Male

DRUGS (3)
  1. CLOZAPINE [Suspect]
     Indication: SCHIZOPHRENIA
     Dosage: 12 - 400MG DAILY
     Route: 048
     Dates: start: 19981020, end: 19991229
  2. CLOZAPINE [Suspect]
     Dosage: 13 - 400MG DAILY
     Route: 048
     Dates: start: 20000707, end: 20030120
  3. CLOZAPINE [Suspect]
     Dosage: 12.5 - 400MG DAILY
     Route: 048
     Dates: start: 20030313, end: 20061128

REACTIONS (1)
  - COMPLETED SUICIDE [None]
